FAERS Safety Report 22077982 (Version 1)
Quarter: 2023Q1

REPORT INFORMATION
  Report Type: Spontaneous
  Country: US (occurrence: US)
  Receive Date: 20230309
  Receipt Date: 20230309
  Transmission Date: 20230417
  Serious: No
  Sender: FDA-Public Use
  Company Number: US-drreddys-SPO/USA/23/0160050

PATIENT
  Age: 80 Year
  Sex: Male

DRUGS (19)
  1. LENALIDOMIDE [Suspect]
     Active Substance: LENALIDOMIDE
     Indication: Toxicity to various agents
     Dosage: TAKE 1 CAPSULE (10MG) BY MOUTH EVERY DAY FOR 21 DAYS OF A 28 DAY CYCLE
     Route: 048
     Dates: start: 20220330
  2. ALLOPURINOL [Concomitant]
     Active Substance: ALLOPURINOL
     Indication: Product used for unknown indication
  3. CLOPIDOGREL BISULFATE [Concomitant]
     Active Substance: CLOPIDOGREL BISULFATE
     Indication: Product used for unknown indication
  4. LEVETIRACETAM [Concomitant]
     Active Substance: LEVETIRACETAM
     Indication: Product used for unknown indication
     Route: 048
  5. METOPROLOL SUCCINATE [Concomitant]
     Active Substance: METOPROLOL SUCCINATE
     Indication: Product used for unknown indication
  6. ONDANSETRON [Concomitant]
     Active Substance: ONDANSETRON
     Indication: Product used for unknown indication
  7. FLOMAX [Concomitant]
     Active Substance: TAMSULOSIN HYDROCHLORIDE
     Indication: Product used for unknown indication
  8. KEPPRA TAB 750MG [Concomitant]
     Indication: Product used for unknown indication
  9. LOVASTATIN TAB 40MG [Concomitant]
     Indication: Product used for unknown indication
  10. PLAVIX [Concomitant]
     Active Substance: CLOPIDOGREL BISULFATE
     Indication: Product used for unknown indication
  11. DEXAMETHASONE [Concomitant]
     Active Substance: DEXAMETHASONE
     Indication: Product used for unknown indication
  12. OMEGA 3-6- 9 CAP [Concomitant]
     Indication: Product used for unknown indication
  13. ROSUVASTATIN [Concomitant]
     Active Substance: ROSUVASTATIN
     Indication: Product used for unknown indication
  14. VITAMIN B 12 TAB 500MCG [Concomitant]
     Indication: Product used for unknown indication
  15. ZINC TAB 100MG [Concomitant]
     Indication: Product used for unknown indication
  16. ASPIRIN TBE 81MG [Concomitant]
     Indication: Product used for unknown indication
  17. BACLOFEN TAB MG [Concomitant]
     Indication: Product used for unknown indication
  18. GABAPENTIN [Concomitant]
     Active Substance: GABAPENTIN
     Indication: Product used for unknown indication
  19. TAMSULOSIN H CAP 0.4MG [Concomitant]
     Indication: Product used for unknown indication

REACTIONS (2)
  - Inappropriate schedule of product administration [Unknown]
  - Product use in unapproved indication [Unknown]
